FAERS Safety Report 9396252 (Version 2)
Quarter: 2013Q3

REPORT INFORMATION
  Report Type: Report from Study
  Country: US (occurrence: US)
  Receive Date: 20130711
  Receipt Date: 20130726
  Transmission Date: 20140515
  Serious: Yes (Death, Hospitalization, Other)
  Sender: FDA-Public Use
  Company Number: US-TEVA-418011USA

PATIENT
  Age: 70 Year
  Sex: Male
  Weight: 89.9 kg

DRUGS (2)
  1. DAUNORUBICIN [Suspect]
     Indication: ACUTE MYELOID LEUKAEMIA
     Dosage: 60MG/M2/DAY DAYS 1-3
     Route: 042
     Dates: start: 20130510
  2. CYTARABINE [Suspect]
     Dosage: 100MG/M2/DAY DAYS 1-7
     Route: 042
     Dates: start: 20130517

REACTIONS (5)
  - Sepsis [Fatal]
  - Febrile neutropenia [Fatal]
  - Pneumonia [Fatal]
  - Stenotrophomonas infection [Fatal]
  - Respiratory moniliasis [Fatal]
